FAERS Safety Report 6987800-9 (Version None)
Quarter: 2010Q3

REPORT INFORMATION
  Report Type: 
  Country: None (occurrence: None)
  Receive Date: 20100830
  Receipt Date: 20100802
  Transmission Date: 20110219
  Serious: No
  Sender: FDA-Public Use
  Company Number: 2010S1000692

PATIENT
  Age: 62 Year
  Sex: Male
  Weight: 109 kg

DRUGS (3)
  1. LIVALO [Suspect]
     Indication: DYSLIPIDAEMIA
     Dosage: 0.5 DF;1X;PO
     Route: 048
     Dates: start: 20100723
  2. FINASTERIDE [Concomitant]
  3. STEROID [Concomitant]

REACTIONS (2)
  - BLOOD GLUCOSE INCREASED [None]
  - TREMOR [None]
